APPROVED DRUG PRODUCT: TEKAMLO
Active Ingredient: ALISKIREN HEMIFUMARATE; AMLODIPINE BESYLATE
Strength: EQ 150MG BASE;EQ 5MG BASE
Dosage Form/Route: TABLET;ORAL
Application: N022545 | Product #001
Applicant: NOVARTIS PHARMACEUTICALS CORP
Approved: Aug 26, 2010 | RLD: No | RS: No | Type: DISCN

PATENTS:
Patent 8613949 | Expires: Dec 21, 2029